FAERS Safety Report 14426875 (Version 1)
Quarter: 2018Q1

REPORT INFORMATION
  Report Type: Report from Study
  Country: US (occurrence: US)
  Receive Date: 20180123
  Receipt Date: 20180123
  Transmission Date: 20180509
  Serious: Yes (Other)
  Sender: FDA-Public Use
  Company Number: PHHY2017US122441

PATIENT
  Age: 50 Year
  Sex: Female

DRUGS (1)
  1. GILENYA [Suspect]
     Active Substance: FINGOLIMOD HYDROCHLORIDE
     Indication: MULTIPLE SCLEROSIS
     Dosage: UNK UNK, QD
     Route: 048

REACTIONS (5)
  - Blood glucose increased [Unknown]
  - Eye naevus [Unknown]
  - Bradycardia [Recovered/Resolved]
  - Macular oedema [Unknown]
  - Retinal telangiectasia [Unknown]

NARRATIVE: CASE EVENT DATE: 20170614
